FAERS Safety Report 11741906 (Version 1)
Quarter: 2015Q4

REPORT INFORMATION
  Report Type: Other
  Country: CN (occurrence: CN)
  Receive Date: 20151116
  Receipt Date: 20151116
  Transmission Date: 20160304
  Serious: Yes (Hospitalization)
  Sender: FDA-Public Use
  Company Number: CN-LUPIN PHARMACEUTICALS INC.-2015-03551

PATIENT
  Age: 28 Year
  Sex: Female

DRUGS (1)
  1. AMLODIPINE [Suspect]
     Active Substance: AMLODIPINE BESYLATE
     Indication: SUICIDE ATTEMPT
     Dosage: 21 TABLETS PER BOX AT 5 MG EACH FOR A TOTAL OF 420 MG
     Route: 048

REACTIONS (7)
  - Suicide attempt [Unknown]
  - Hypocalcaemia [Recovered/Resolved]
  - Metabolic acidosis [Recovered/Resolved]
  - Acute respiratory failure [Recovered/Resolved]
  - Intentional overdose [Unknown]
  - Hypotension [Recovered/Resolved]
  - Non-cardiogenic pulmonary oedema [Recovered/Resolved]
